FAERS Safety Report 14119340 (Version 1)
Quarter: 2017Q4

REPORT INFORMATION
  Report Type: Spontaneous
  Country: US (occurrence: US)
  Receive Date: 20171023
  Receipt Date: 20171023
  Transmission Date: 20180321
  Serious: Yes (Other)
  Sender: FDA-Public Use
  Company Number: None

PATIENT
  Sex: Male
  Weight: 95.4 kg

DRUGS (6)
  1. MULTIVITAMIN [Concomitant]
     Active Substance: VITAMINS
  2. DIOVAN [Concomitant]
     Active Substance: VALSARTAN
  3. MEGA RED [Concomitant]
  4. VERAPAMIL [Concomitant]
     Active Substance: VERAPAMIL HYDROCHLORIDE
  5. TUDORZA PRESSAIR [Suspect]
     Active Substance: ACLIDINIUM BROMIDE
     Indication: EMPHYSEMA
     Dosage: ?          QUANTITY:1 INHALATION(S);?
     Route: 055
     Dates: start: 20171007, end: 20171021
  6. LIPITOR [Concomitant]
     Active Substance: ATORVASTATIN CALCIUM

REACTIONS (4)
  - Tongue disorder [None]
  - Lip exfoliation [None]
  - Dysgeusia [None]
  - Lip dry [None]

NARRATIVE: CASE EVENT DATE: 20171021
